FAERS Safety Report 9693460 (Version 1)
Quarter: 2013Q4

REPORT INFORMATION
  Report Type: Spontaneous
  Country: US (occurrence: US)
  Receive Date: 20131118
  Receipt Date: 20131118
  Transmission Date: 20140711
  Serious: Yes (Death)
  Sender: FDA-Public Use
  Company Number: US-PFIZER INC-2013325523

PATIENT
  Age: 56 Year
  Sex: Male

DRUGS (2)
  1. LIPITOR [Suspect]
     Indication: MYOCARDIAL INFARCTION
     Dosage: UNK
  2. LIPITOR [Suspect]
     Indication: DIABETES MELLITUS

REACTIONS (3)
  - Myocardial infarction [Fatal]
  - Drug ineffective [Fatal]
  - Off label use [Unknown]
